FAERS Safety Report 9828307 (Version 1)
Quarter: 2014Q1

REPORT INFORMATION
  Report Type: Spontaneous
  Country: IL (occurrence: IL)
  Receive Date: 20140117
  Receipt Date: 20140117
  Transmission Date: 20141002
  Serious: Yes (Other)
  Sender: FDA-Public Use
  Company Number: IL-WATSON-2014-00175

PATIENT
  Age: 54 Year
  Sex: Male

DRUGS (6)
  1. PREDNISOLONE (UNKNOWN) [Suspect]
     Indication: COLITIS ULCERATIVE
     Dosage: UNK
     Route: 048
  2. HYDROCORTISONE (UNKNOWN) [Suspect]
     Indication: COLITIS ULCERATIVE
     Dosage: 200 MG, UNKNOWN
     Route: 042
  3. MERCAPTOPURINE [Concomitant]
     Indication: COLITIS ULCERATIVE
     Dosage: 1.5 MG/KG, UNKNOWN
     Route: 065
  4. OMEPRAZOLE [Concomitant]
     Indication: GASTROOESOPHAGEAL REFLUX DISEASE
     Dosage: UNK
     Route: 065
  5. SALBUTAMOL [Concomitant]
     Indication: ASTHMA
     Dosage: UNK
     Route: 065
  6. IPRATROPIUM BROMIDE [Concomitant]
     Indication: ASTHMA
     Dosage: UNK
     Route: 065

REACTIONS (2)
  - Chorioretinopathy [Recovered/Resolved]
  - Condition aggravated [Recovered/Resolved]
